FAERS Safety Report 5074123-0 (Version None)
Quarter: 2006Q3

REPORT INFORMATION
  Report Type: 
  Country: None (occurrence: None)
  Receive Date: 20060808
  Receipt Date: 20060727
  Transmission Date: 20061208
  Serious: Yes (Hospitalization)
  Sender: FDA-Public Use
  Company Number: FR-BRISTOL-MYERS SQUIBB COMPANY-13458765

PATIENT
  Age: 60 Year
  Sex: Female

DRUGS (9)
  1. VASTEN TABS [Suspect]
     Indication: HYPERCHOLESTEROLAEMIA
     Route: 048
  2. FELDENE [Suspect]
     Indication: SCIATICA
     Route: 048
     Dates: start: 20041115, end: 20060319
  3. ISOPTIN [Suspect]
     Indication: ESSENTIAL HYPERTENSION
     Route: 048
  4. SYMBICORT [Suspect]
     Indication: BRONCHITIS CHRONIC
     Dosage: DOSAGE FORM =UNIT POWDER
     Route: 048
  5. UTROGESTAN [Suspect]
     Indication: MENOPAUSE
     Route: 048
  6. ESTREVA [Suspect]
     Indication: MENOPAUSE
     Route: 048
  7. NEXIUM [Concomitant]
     Route: 048
     Dates: start: 20050101
  8. DUPHALAC [Concomitant]
     Route: 048
     Dates: start: 20050601
  9. PROZAC [Concomitant]
     Route: 048
     Dates: start: 20040301

REACTIONS (1)
  - COLITIS [None]
